FAERS Safety Report 4407808-7 (Version None)
Quarter: 2004Q3

REPORT INFORMATION
  Report Type: 
  Country: None (occurrence: None)
  Receive Date: 20040726
  Receipt Date: 20040707
  Transmission Date: 20050211
  Serious: Yes (Hospitalization)
  Sender: FDA-Public Use
  Company Number: PHBS2004JP09203

PATIENT
  Age: 67 Year
  Sex: Female

DRUGS (5)
  1. PARLODEL [Suspect]
     Indication: PARKINSONISM
     Route: 048
  2. SYMMETREL [Suspect]
     Indication: PARKINSONISM
     Route: 048
  3. TRIHEXYPHENIDYL HYDROCHLORIDE [Suspect]
     Indication: PARKINSONISM
     Route: 048
  4. LEVODOPA W/BENSERAZIDE/ [Suspect]
     Indication: PARKINSONISM
     Route: 048
  5. CARBIDOPA [Suspect]

REACTIONS (13)
  - AUTONOMIC NERVOUS SYSTEM IMBALANCE [None]
  - CEREBELLAR ATROPHY [None]
  - CEREBRAL ATROPHY [None]
  - CONSTIPATION [None]
  - CONTUSION [None]
  - DIFFICULTY IN WALKING [None]
  - DYSSTASIA [None]
  - FALL [None]
  - GAIT DISTURBANCE [None]
  - HEAD INJURY [None]
  - MICTURITION DISORDER [None]
  - PARKINSONISM [None]
  - TORTICOLLIS [None]
